FAERS Safety Report 17663917 (Version 1)
Quarter: 2020Q2

REPORT INFORMATION
  Report Type: Spontaneous
  Country: None (occurrence: IT)
  Receive Date: 20200414
  Receipt Date: 20200414
  Transmission Date: 20200713
  Serious: Yes (Other)
  Sender: FDA-Public Use
  Company Number: IT-MICRO LABS LIMITED-ML2020-01162

PATIENT

DRUGS (8)
  1. CEFTAZIDIME. [Suspect]
     Active Substance: CEFTAZIDIME
  2. METRONIDAZOLE. [Suspect]
     Active Substance: METRONIDAZOLE
  3. GENTAMICIN. [Suspect]
     Active Substance: GENTAMICIN
  4. ENOXAPARIN [Suspect]
     Active Substance: ENOXAPARIN
  5. ACYCLOVIR. [Suspect]
     Active Substance: ACYCLOVIR
  6. CEFTRIAXONE. [Suspect]
     Active Substance: CEFTRIAXONE
  7. VANCOMYCIN [Suspect]
     Active Substance: VANCOMYCIN
  8. AMOXICILLIN/CLAVULANIC ACID [Suspect]
     Active Substance: AMOXICILLIN\CLAVULANIC ACID

REACTIONS (1)
  - Drug reaction with eosinophilia and systemic symptoms [Unknown]
